FAERS Safety Report 12320386 (Version 1)
Quarter: 2016Q2

REPORT INFORMATION
  Report Type: Report from Study
  Country: US (occurrence: US)
  Receive Date: 20160501
  Receipt Date: 20160501
  Transmission Date: 20160815
  Serious: No
  Sender: FDA-Public Use
  Company Number: US-009507513-1604USA012347

PATIENT
  Sex: Female

DRUGS (1)
  1. KEYTRUDA [Suspect]
     Active Substance: PEMBROLIZUMAB
     Indication: NON-SMALL CELL LUNG CANCER
     Dosage: FREQUENCY: EVERY TWO WEEKS
     Route: 042
     Dates: start: 201405

REACTIONS (2)
  - Influenza like illness [Unknown]
  - Fatigue [Not Recovered/Not Resolved]
